FAERS Safety Report 23884454 (Version 1)
Quarter: 2024Q2

REPORT INFORMATION
  Report Type: Spontaneous
  Country: US (occurrence: US)
  Receive Date: 20240522
  Receipt Date: 20240522
  Transmission Date: 20240716
  Serious: Yes (Other)
  Sender: FDA-Public Use
  Company Number: US-PFIZER INC-202400173290

PATIENT
  Age: 26 Year
  Sex: Female

DRUGS (2)
  1. XELJANZ XR [Suspect]
     Active Substance: TOFACITINIB CITRATE
     Dosage: 11 MG PER DAY
     Route: 048
     Dates: start: 202305
  2. CALCIUM\VITAMIN D [Concomitant]
     Active Substance: CALCIUM\VITAMIN D
     Dosage: UNK

REACTIONS (2)
  - Sleeve gastrectomy [Unknown]
  - Pain [Unknown]

NARRATIVE: CASE EVENT DATE: 20230101
